FAERS Safety Report 8853433 (Version 1)
Quarter: 2012Q4

REPORT INFORMATION
  Report Type: Report from Study
  Country: US (occurrence: US)
  Receive Date: 20121022
  Receipt Date: 20121022
  Transmission Date: 20130627
  Serious: Yes (Other)
  Sender: FDA-Public Use
  Company Number: US-GLAXOSMITHKLINE-A0998031A

PATIENT
  Age: 20 Year
  Sex: Female
  Weight: 66.5 kg

DRUGS (12)
  1. NELARABINE [Suspect]
     Indication: T-CELL TYPE ACUTE LEUKAEMIA
     Dosage: 650MGM2 Cyclic
     Route: 042
     Dates: start: 20120624, end: 20120803
  2. METHOTREXATE [Suspect]
     Indication: NON-HODGKIN^S LYMPHOMA
     Route: 037
  3. CYCLOPHOSPHAMIDE [Suspect]
     Indication: T-CELL TYPE ACUTE LEUKAEMIA
     Dosage: 1000MGM2 Cyclic
     Route: 042
  4. CYTARABINE [Suspect]
     Indication: NON-HODGKIN^S LYMPHOMA
     Dosage: 75MGM2 Cyclic
  5. MERCAPTOPURINE [Suspect]
     Indication: T-CELL TYPE ACUTE LEUKAEMIA
     Dosage: 60MGM2 Cyclic
     Route: 048
  6. VINCRISTINE [Suspect]
     Indication: NON-HODGKIN^S LYMPHOMA
     Dosage: 1.5MGM2 Cyclic
     Route: 042
  7. PEG-ASPARAGINASE [Suspect]
     Indication: T-CELL TYPE ACUTE LEUKAEMIA
     Route: 030
  8. RADIATION [Concomitant]
     Indication: NON-HODGKIN^S LYMPHOMA
  9. TOPAMAX [Concomitant]
     Indication: MIGRAINE
     Dosage: 25MG Per day
     Route: 048
  10. NEURONTIN [Concomitant]
  11. MORPHINE [Concomitant]
     Indication: PAIN
  12. LOVENOX [Concomitant]

REACTIONS (1)
  - Rhabdomyolysis [Recovering/Resolving]
